FAERS Safety Report 5243802-4 (Version None)
Quarter: 2007Q1

REPORT INFORMATION
  Report Type: 
  Country: None (occurrence: None)
  Receive Date: 20070222
  Receipt Date: 20070212
  Transmission Date: 20070707
  Serious: Yes (Other)
  Sender: FDA-Public Use
  Company Number: JP-BRISTOL-MYERS SQUIBB COMPANY-13676903

PATIENT
  Age: 56 Year
  Sex: Male

DRUGS (7)
  1. CYCLOPHOSPHAMIDE [Suspect]
  2. METHOTREXATE [Suspect]
     Indication: PROPHYLAXIS
  3. METHOTREXATE [Suspect]
  4. FLUDARABINE [Suspect]
  5. TACROLIMUS [Suspect]
     Indication: PROPHYLAXIS
  6. PREDNISOLONE [Suspect]
  7. HEMATOPOETIC PROGENITOR CELLS HUMAN [Concomitant]

REACTIONS (3)
  - GRAFT VERSUS HOST DISEASE [None]
  - RENAL FAILURE ACUTE [None]
  - VIRAL MYOCARDITIS [None]
